FAERS Safety Report 6430470-9 (Version None)
Quarter: 2009Q4

REPORT INFORMATION
  Report Type: 
  Country: None (occurrence: None)
  Receive Date: 20091106
  Receipt Date: 20091027
  Transmission Date: 20100525
  Serious: Yes (Other)
  Sender: FDA-Public Use
  Company Number: US-ELI_LILLY_AND_COMPANY-US200909000701

PATIENT
  Sex: Female

DRUGS (4)
  1. ALIMTA [Suspect]
     Indication: NON-SMALL CELL LUNG CANCER
  2. FOLIC ACID [Concomitant]
  3. VITAMIN B-12 [Concomitant]
  4. CORTICOSTEROIDS [Concomitant]

REACTIONS (5)
  - BLOOD CREATININE INCREASED [None]
  - MENTAL STATUS CHANGES [None]
  - PANCYTOPENIA [None]
  - RENAL FAILURE [None]
  - THROMBOTIC THROMBOCYTOPENIC PURPURA [None]
